FAERS Safety Report 4386593-1 (Version None)
Quarter: 2004Q2

REPORT INFORMATION
  Report Type: 
  Country: None (occurrence: None)
  Receive Date: 20040629
  Receipt Date: 20040520
  Transmission Date: 20050107
  Serious: Yes (Congenital Anomaly)
  Sender: FDA-Public Use
  Company Number: 33447

PATIENT
  Sex: Female
  Weight: 1.5 kg

DRUGS (3)
  1. COMBIVIR [Suspect]
     Indication: HIV INFECTION
     Dosage: 2TAB PER DAY
     Dates: start: 20031202
  2. KALETRA [Concomitant]
     Indication: HIV INFECTION
     Dates: start: 20031202
  3. FOLATE [Concomitant]
     Indication: NUTRITIONAL SUPPORT

REACTIONS (4)
  - ARACHNOID CYST [None]
  - DRUG EXPOSURE DURING PREGNANCY [None]
  - HAEMORRHAGE INTRACRANIAL [None]
  - PREMATURE BABY [None]
